FAERS Safety Report 11277349 (Version 10)
Quarter: 2016Q4

REPORT INFORMATION
  Report Type: Report from Study
  Country: JP (occurrence: JP)
  Receive Date: 20150716
  Receipt Date: 20161214
  Transmission Date: 20170206
  Serious: Yes (Death, Hospitalization, Other)
  Sender: FDA-Public Use
  Company Number: JP-INCYTE CORPORATION-2014IN002975

PATIENT
  Age: 84 Year
  Sex: Female

DRUGS (8)
  1. JAKAFI [Suspect]
     Active Substance: RUXOLITINIB
     Dosage: 10 MG, BID
     Route: 048
     Dates: start: 20150522
  2. LASTET [Concomitant]
     Active Substance: ETOPOSIDE
     Indication: MYELOFIBROSIS
     Dosage: 25 MG, QD
     Route: 048
     Dates: end: 20131226
  3. HYDREA [Concomitant]
     Active Substance: HYDROXYUREA
     Indication: MYELOFIBROSIS
     Dosage: 500 MG, QD
     Route: 048
     Dates: end: 20131017
  4. JAKAFI [Suspect]
     Active Substance: RUXOLITINIB
     Dosage: 10 MG, BID
     Route: 048
     Dates: start: 20150110, end: 20150122
  5. JAKAFI [Suspect]
     Active Substance: RUXOLITINIB
     Dosage: 15 MG, BID
     Route: 048
     Dates: start: 20150123, end: 20150302
  6. JAKAFI [Suspect]
     Active Substance: RUXOLITINIB
     Dosage: 15 MG, BID
     Route: 048
     Dates: start: 20150320, end: 20150515
  7. CYMERIN [Concomitant]
     Active Substance: RANIMUSTINE
     Indication: MYELOFIBROSIS
     Dosage: 100 MG, QD
     Route: 065
     Dates: end: 20140117
  8. JAKAFI [Suspect]
     Active Substance: RUXOLITINIB
     Indication: MYELOFIBROSIS
     Dosage: 20 MG, BID
     Route: 048
     Dates: start: 20141107, end: 20150109

REACTIONS (13)
  - Pneumonia [Recovering/Resolving]
  - Pneumocystis jirovecii pneumonia [Fatal]
  - Intestinal obstruction [Unknown]
  - Pneumonia bacterial [Fatal]
  - Anaemia [Not Recovered/Not Resolved]
  - White blood cell count increased [Unknown]
  - Dehydration [Unknown]
  - Renal failure [Unknown]
  - Bone marrow failure [Recovered/Resolved]
  - Thrombocytopenia [Unknown]
  - Constipation [Recovered/Resolved]
  - Interstitial lung disease [Unknown]
  - Opportunistic infection [Unknown]

NARRATIVE: CASE EVENT DATE: 2015
